FAERS Safety Report 21426056 (Version 4)
Quarter: 2024Q1

REPORT INFORMATION
  Report Type: Report from Study
  Country: CO (occurrence: CO)
  Receive Date: 20221008
  Receipt Date: 20240124
  Transmission Date: 20240410
  Serious: Yes (Life-Threatening, Other)
  Sender: FDA-Public Use
  Company Number: CO-NOVARTISPH-NVSC2022CO100553

PATIENT
  Sex: Female
  Weight: 73 kg

DRUGS (5)
  1. ELTROMBOPAG OLAMINE [Suspect]
     Active Substance: ELTROMBOPAG OLAMINE
     Indication: Immune thrombocytopenia
     Dosage: 25 MG, QD
     Route: 048
  2. ELTROMBOPAG OLAMINE [Suspect]
     Active Substance: ELTROMBOPAG OLAMINE
     Dosage: 50 MG, QD
     Route: 048
  3. ELTROMBOPAG OLAMINE [Suspect]
     Active Substance: ELTROMBOPAG OLAMINE
     Dosage: 1 DOSAGE FORM
     Route: 048
  4. ELTROMBOPAG OLAMINE [Suspect]
     Active Substance: ELTROMBOPAG OLAMINE
     Dosage: UNK (HALF TABLET)
     Route: 048
  5. ELTROMBOPAG OLAMINE [Suspect]
     Active Substance: ELTROMBOPAG OLAMINE
     Dosage: 25 MG, QD
     Route: 048
     Dates: start: 20220506

REACTIONS (9)
  - Platelet count decreased [Unknown]
  - Contusion [Unknown]
  - Swelling [Unknown]
  - Tremor [Unknown]
  - Pain [Unknown]
  - Fibromyalgia [Unknown]
  - Asthenia [Unknown]
  - Alopecia [Unknown]
  - Wrong technique in product usage process [Unknown]
